FAERS Safety Report 5721834-7 (Version None)
Quarter: 2008Q2

REPORT INFORMATION
  Report Type: 
  Country: None (occurrence: None)
  Receive Date: 20080429
  Receipt Date: 20070614
  Transmission Date: 20081010
  Serious: No
  Sender: FDA-Public Use
  Company Number: US-ASTRAZENECA-2007UW14246

PATIENT
  Age: 34 Year
  Sex: Female
  Weight: 97.5 kg

DRUGS (1)
  1. NEXIUM [Suspect]
     Indication: PHARYNGOLARYNGEAL PAIN
     Route: 048

REACTIONS (2)
  - ABSCESS OF SALIVARY GLAND [None]
  - FOAMING AT MOUTH [None]
